FAERS Safety Report 11716425 (Version 2)
Quarter: 2015Q4

REPORT INFORMATION
  Report Type: Spontaneous
  Country: US (occurrence: US)
  Receive Date: 20151109
  Receipt Date: 20151202
  Transmission Date: 20160304
  Serious: Yes (Hospitalization)
  Sender: FDA-Public Use
  Company Number: US-ASTELLAS-2015US040910

PATIENT
  Age: 62 Year
  Sex: Female

DRUGS (3)
  1. ASTAGRAF XL [Suspect]
     Active Substance: TACROLIMUS
     Indication: RENAL TRANSPLANT
     Route: 048
     Dates: start: 20140905
  2. ASTAGRAF XL [Suspect]
     Active Substance: TACROLIMUS
     Indication: RENAL TRANSPLANT
     Dosage: 12 MG TOTAL DOSE (5MG X UNKNOWN AND 1 MG X UNKNOWN) UNKNOWN FREQ.
     Route: 048
     Dates: start: 20141126
  3. ASTAGRAF XL [Suspect]
     Active Substance: TACROLIMUS
     Dosage: 12 MG TOTAL DOSE (5MG X UNKNOWN AND 1 MG X UNKNOWN) UNKNOWN FREQ.
     Route: 048
     Dates: start: 20141126

REACTIONS (3)
  - Pyrexia [Unknown]
  - Hospitalisation [Unknown]
  - Pneumonia streptococcal [Unknown]

NARRATIVE: CASE EVENT DATE: 20151103
